FAERS Safety Report 6589155-0 (Version None)
Quarter: 2010Q1

REPORT INFORMATION
  Report Type: 
  Country: None (occurrence: None)
  Receive Date: 20100218
  Receipt Date: 20100204
  Transmission Date: 20100710
  Serious: Yes (Death)
  Sender: FDA-Public Use
  Company Number: MX-CUBIST-2010S1000080

PATIENT

DRUGS (1)
  1. CUBICIN [Suspect]
     Indication: ENDOCARDITIS

REACTIONS (3)
  - DEATH [None]
  - DRUG INEFFECTIVE [None]
  - THERAPEUTIC RESPONSE UNEXPECTED [None]
